FAERS Safety Report 10881642 (Version 1)
Quarter: 2015Q1

REPORT INFORMATION
  Report Type: Report from Study
  Country: CO (occurrence: CO)
  Receive Date: 20150303
  Receipt Date: 20150303
  Transmission Date: 20150721
  Serious: Yes (Death, Hospitalization)
  Sender: FDA-Public Use
  Company Number: CO-SA-2015SA024729

PATIENT
  Age: 78 Year
  Sex: Male

DRUGS (1)
  1. APIDRA [Suspect]
     Active Substance: INSULIN GLULISINE
     Indication: DIABETES MELLITUS
     Route: 058
     Dates: start: 201409, end: 20150208

REACTIONS (3)
  - Decubitus ulcer [Unknown]
  - Viral infection [Fatal]
  - Sepsis [Fatal]

NARRATIVE: CASE EVENT DATE: 201412
